FAERS Safety Report 7201698-5 (Version None)
Quarter: 2010Q4

REPORT INFORMATION
  Report Type: 
  Country: None (occurrence: None)
  Receive Date: 20101229
  Receipt Date: 20101221
  Transmission Date: 20110411
  Serious: Yes (Hospitalization)
  Sender: FDA-Public Use
  Company Number: US-ROCHE-746332

PATIENT
  Age: 66 Year
  Sex: Female
  Weight: 91 kg

DRUGS (15)
  1. MYCOPHENOLATE MOFETIL [Suspect]
     Route: 048
     Dates: start: 20080905
  2. NEORAL [Suspect]
     Route: 048
     Dates: start: 20100625
  3. PREDNISONE [Suspect]
     Route: 048
     Dates: start: 20090520
  4. ENALAPRIL MALEATE [Concomitant]
     Dates: start: 20100518
  5. FUROSEMIDE [Concomitant]
     Dates: start: 20080602
  6. HYDROCHLOROTHIAZIDE [Concomitant]
     Dates: start: 20100216
  7. HYDROXYCHLOROQUINE SULFATE [Concomitant]
     Dates: start: 20080620
  8. METOPROLOL TARTRATE [Concomitant]
     Dates: start: 20080703
  9. AMLODIPINE [Concomitant]
     Dates: start: 20081022
  10. TRAMADOL HCL [Concomitant]
     Dates: start: 20090204
  11. OMEPRAZOLE [Concomitant]
     Dates: start: 20080526
  12. DIPHENHYDRAMINE [Concomitant]
     Dates: start: 20000101
  13. DOCUSATE [Concomitant]
     Dates: start: 20080527
  14. CALCIUM CARBONATE [Concomitant]
     Dates: start: 20080606
  15. SPIRONOLACTONE [Concomitant]
     Dates: start: 20100216

REACTIONS (2)
  - HYPERKALAEMIA [None]
  - TRANSPLANT REJECTION [None]
